FAERS Safety Report 20486473 (Version 1)
Quarter: 2022Q1

REPORT INFORMATION
  Report Type: Spontaneous
  Country: US (occurrence: US)
  Receive Date: 20220217
  Receipt Date: 20220217
  Transmission Date: 20220423
  Serious: Yes (Other)
  Sender: FDA-Public Use
  Company Number: US-GLAXOSMITHKLINE-US2022GSK024909

PATIENT
  Sex: Male

DRUGS (4)
  1. ZANTAC [Suspect]
     Active Substance: RANITIDINE HYDROCHLORIDE
     Indication: Dyspepsia
     Dosage: 75 MG, 4 DAYS OUT OF THE WEEK
     Route: 065
     Dates: start: 198405, end: 201702
  2. ZANTAC [Suspect]
     Active Substance: RANITIDINE HYDROCHLORIDE
     Dosage: 100 MG, 4 DAYS OUT OF THE WEEK
     Route: 065
     Dates: start: 198405, end: 201702
  3. ZANTAC [Suspect]
     Active Substance: RANITIDINE HYDROCHLORIDE
     Indication: Dyspepsia
     Dosage: 75 MG, 4 DAYS OUT OF THE WEEK
     Route: 065
     Dates: start: 198405, end: 201702
  4. ZANTAC [Suspect]
     Active Substance: RANITIDINE HYDROCHLORIDE
     Dosage: 100 MG, 4 DAYS OUT OF THE WEEK
     Route: 065
     Dates: start: 198405, end: 201702

REACTIONS (1)
  - Prostate cancer [Unknown]
